FAERS Safety Report 24087424 (Version 1)
Quarter: 2024Q3

REPORT INFORMATION
  Report Type: Spontaneous
  Country: CN (occurrence: CN)
  Receive Date: 20240714
  Receipt Date: 20240714
  Transmission Date: 20241017
  Serious: Yes (Other)
  Sender: BAXTER
  Company Number: None

PATIENT
  Age: 45 Year
  Sex: Female
  Weight: 41 kg

DRUGS (6)
  1. CYCLOPHOSPHAMIDE [Suspect]
     Active Substance: CYCLOPHOSPHAMIDE
     Indication: Chemotherapy
     Dosage: 0.75 G, ONE TIME IN ONE DAY DILUTED IN 100 ML OF 0.9 % SODIUM CHLORIDE (50-60 DROPS/MIN)
     Route: 041
     Dates: start: 20240423, end: 20240423
  2. CYCLOPHOSPHAMIDE [Suspect]
     Active Substance: CYCLOPHOSPHAMIDE
     Indication: Breast cancer female
  3. SODIUM CHLORIDE [Suspect]
     Active Substance: SODIUM CHLORIDE
     Indication: Medication dilution
     Dosage: 100 ML, ONE TIME IN ONE DAY, INJECTON, USED TO DILUTE 0.75 MG CYCLOPHOSPHAMIDE (50-60 DROPS/MIN)
     Route: 041
     Dates: start: 20240423, end: 20240423
  4. SODIUM CHLORIDE [Suspect]
     Active Substance: SODIUM CHLORIDE
     Dosage: 250 ML, ONE TIME IN ONE DAY, INJECTION, USED TO DILUTE 92 MG OF DOCETAXEL (50-60 DROPS/MIN, AVOID LI
     Route: 041
  5. DOCETAXEL [Suspect]
     Active Substance: DOCETAXEL\DOCETAXEL ANHYDROUS
     Indication: Chemotherapy
     Dosage: 92 MG, ONE TIME IN ONE DAY DILUTED IN 250 ML OF 0.9 % OF SODIUM CHLORIDE (50-60 DROPS/MIN, AVOID LIG
     Route: 041
     Dates: start: 20240423, end: 20240423
  6. DOCETAXEL [Suspect]
     Active Substance: DOCETAXEL\DOCETAXEL ANHYDROUS
     Indication: Breast cancer female

REACTIONS (3)
  - Myelosuppression [Recovering/Resolving]
  - Pruritus [Recovering/Resolving]
  - Limb discomfort [Unknown]

NARRATIVE: CASE EVENT DATE: 20240424
